FAERS Safety Report 13095555 (Version 2)
Quarter: 2018Q2

REPORT INFORMATION
  Report Type: Spontaneous
  Country: CA (occurrence: CA)
  Receive Date: 20170108
  Receipt Date: 20180425
  Transmission Date: 20180711
  Serious: Yes (Other)
  Sender: FDA-Public Use
  Company Number: CA-ROCHE-1875132

PATIENT
  Sex: Female

DRUGS (34)
  1. METHOTREXATE SODIUM. [Suspect]
     Active Substance: METHOTREXATE SODIUM
     Indication: PRODUCT USED FOR UNKNOWN INDICATION
     Route: 065
  2. NORFLEX [Concomitant]
     Active Substance: ORPHENADRINE CITRATE
  3. OMNARIS [Concomitant]
     Active Substance: CICLESONIDE
  4. ORENCIA [Suspect]
     Active Substance: ABATACEPT
     Indication: PRODUCT USED FOR UNKNOWN INDICATION
     Route: 065
  5. ACETAMINOPHEN. [Concomitant]
     Active Substance: ACETAMINOPHEN
  6. CORTISONE [Concomitant]
     Active Substance: CORTISONE\HYDROCORTISONE
  7. KADIAN [Concomitant]
     Active Substance: MORPHINE SULFATE
  8. RESTASIS [Concomitant]
     Active Substance: CYCLOSPORINE
  9. URISPAS [Concomitant]
     Active Substance: FLAVOXATE HYDROCHLORIDE
     Route: 065
  10. ACTEMRA [Suspect]
     Active Substance: TOCILIZUMAB
     Indication: PRODUCT USED FOR UNKNOWN INDICATION
     Route: 065
  11. PLAQUENIL [Suspect]
     Active Substance: HYDROXYCHLOROQUINE SULFATE
     Indication: PRODUCT USED FOR UNKNOWN INDICATION
     Route: 065
  12. SODIUM AUROTHIOMALATE [Suspect]
     Active Substance: GOLD SODIUM THIOMALATE
     Indication: PRODUCT USED FOR UNKNOWN INDICATION
     Route: 065
  13. HYDROMORPHONE [Concomitant]
     Active Substance: HYDROMORPHONE
  14. VAGIFEM [Concomitant]
     Active Substance: ESTRADIOL
  15. ENBREL [Suspect]
     Active Substance: ETANERCEPT
     Indication: RHEUMATOID ARTHRITIS
     Route: 065
  16. ENABLEX [Concomitant]
     Active Substance: DARIFENACIN HYDROBROMIDE
     Route: 048
  17. LOPERAMIDE [Concomitant]
     Active Substance: LOPERAMIDE
  18. ARAVA [Suspect]
     Active Substance: LEFLUNOMIDE
     Indication: RHEUMATOID ARTHRITIS
     Route: 065
  19. ATIVAN [Concomitant]
     Active Substance: LORAZEPAM
  20. DEXAMETHASONE. [Concomitant]
     Active Substance: DEXAMETHASONE
  21. OXYNEO [Concomitant]
     Active Substance: OXYCODONE
  22. RITUXAN [Concomitant]
     Active Substance: RITUXIMAB
  23. SYNTHROID [Concomitant]
     Active Substance: LEVOTHYROXINE SODIUM
  24. HUMIRA [Suspect]
     Active Substance: ADALIMUMAB
     Indication: PRODUCT USED FOR UNKNOWN INDICATION
     Route: 065
  25. BENADRYL + DYCLONE MOUTHRINSE [Concomitant]
  26. DILAUDID [Concomitant]
     Active Substance: HYDROMORPHONE HYDROCHLORIDE
  27. PANTOLOC [Concomitant]
     Active Substance: PANTOPRAZOLE SODIUM
  28. REMICADE [Suspect]
     Active Substance: INFLIXIMAB
     Indication: PRODUCT USED FOR UNKNOWN INDICATION
     Route: 065
  29. XELJANZ [Suspect]
     Active Substance: TOFACITINIB CITRATE
     Indication: PRODUCT USED FOR UNKNOWN INDICATION
     Route: 065
  30. CODEINE [Concomitant]
     Active Substance: CODEINE
  31. KENALOG (CANADA) [Concomitant]
  32. KINERET [Concomitant]
     Active Substance: ANAKINRA
  33. LASIX [Concomitant]
     Active Substance: FUROSEMIDE
  34. TRIMETHOPRIM. [Concomitant]
     Active Substance: TRIMETHOPRIM

REACTIONS (12)
  - Anaemia [Unknown]
  - Infection [Unknown]
  - Fibromyalgia [Unknown]
  - Soft tissue disorder [Unknown]
  - Liver function test abnormal [Unknown]
  - Synovitis [Unknown]
  - Arthritis [Unknown]
  - Joint swelling [Unknown]
  - Leukopenia [Unknown]
  - Peripheral swelling [Unknown]
  - Blood cholesterol increased [Unknown]
  - Herpes zoster [Unknown]
